FAERS Safety Report 13149150 (Version 4)
Quarter: 2017Q1

REPORT INFORMATION
  Report Type: Spontaneous
  Country: US (occurrence: US)
  Receive Date: 20170125
  Receipt Date: 20170315
  Transmission Date: 20170428
  Serious: Yes (Other)
  Sender: FDA-Public Use
  Company Number: US-SIGMAPHARM LABORATORIES, LLC-2017SIG00003

PATIENT
  Age: 54 Year
  Sex: Female
  Weight: 145.13 kg

DRUGS (9)
  1. LEVOTHYROXINE. [Concomitant]
     Active Substance: LEVOTHYROXINE
     Dosage: 175 MCG, 1X/DAY
  2. CONTRAST (GAS BUBBLE) [Concomitant]
  3. LIOTHYRONINE SODIUM. [Suspect]
     Active Substance: LIOTHYRONINE SODIUM
     Indication: HYPOTHYROIDISM
     Dosage: 25 MCG, 1X/DAY
     Route: 048
     Dates: start: 201509, end: 2015
  4. LIOTHYRONINE SODIUM. [Suspect]
     Active Substance: LIOTHYRONINE SODIUM
     Dosage: 25 MCG, 1X/DAY
  5. LIOTHYRONINE SODIUM. [Suspect]
     Active Substance: LIOTHYRONINE SODIUM
     Dosage: 25 MCG, 1X/DAY
  6. METFORMIN [Concomitant]
     Active Substance: METFORMIN HYDROCHLORIDE
     Dosage: 0.5 DOSAGE UNITS, UNK
  7. MAGNESIUM CITRATE. [Suspect]
     Active Substance: MAGNESIUM CITRATE
  8. METFORMIN [Concomitant]
     Active Substance: METFORMIN HYDROCHLORIDE
     Indication: WEIGHT DECREASED
     Dosage: 0.25 DOSAGE UNITS, UNK
  9. LIOTHYRONINE SODIUM. [Suspect]
     Active Substance: LIOTHYRONINE SODIUM
     Dosage: 25 MCG, 1X/DAY
     Route: 048
     Dates: start: 20170207, end: 20170301

REACTIONS (31)
  - Thyroid function test abnormal [Unknown]
  - Pain [Recovering/Resolving]
  - Hyperhidrosis [Unknown]
  - Hypothyroidism [Recovering/Resolving]
  - Swelling face [Recovering/Resolving]
  - Ileus paralytic [Recovering/Resolving]
  - Tri-iodothyronine decreased [Unknown]
  - Fatigue [Unknown]
  - Ligament disorder [Unknown]
  - Product quality issue [Not Recovered/Not Resolved]
  - Menopause [Not Recovered/Not Resolved]
  - Somnolence [Unknown]
  - Feeling abnormal [Recovering/Resolving]
  - Dysmenorrhoea [Unknown]
  - Activities of daily living impaired [Not Recovered/Not Resolved]
  - Myxoedema [Recovering/Resolving]
  - Parotid gland enlargement [Unknown]
  - Thyroxine decreased [Unknown]
  - Hypoacusis [Recovering/Resolving]
  - Dysstasia [Recovering/Resolving]
  - Gait disturbance [Recovering/Resolving]
  - Malaise [Unknown]
  - Fluid intake reduced [Unknown]
  - Asthenia [Recovering/Resolving]
  - Sleep disorder [Unknown]
  - Menstruation delayed [Not Recovered/Not Resolved]
  - Peripheral swelling [Recovering/Resolving]
  - Megacolon [Unknown]
  - Swollen tongue [Recovering/Resolving]
  - Productive cough [Unknown]
  - Hypoaesthesia [Recovering/Resolving]

NARRATIVE: CASE EVENT DATE: 201509
